FAERS Safety Report 22381164 (Version 1)
Quarter: 2023Q2

REPORT INFORMATION
  Report Type: Spontaneous
  Country: AR (occurrence: AR)
  Receive Date: 20230530
  Receipt Date: 20230530
  Transmission Date: 20230721
  Serious: Yes (Other)
  Sender: FDA-Public Use
  Company Number: AR-SA-SAC20230526001422

PATIENT
  Age: 56 Year
  Sex: Male

DRUGS (1)
  1. DUPILUMAB [Suspect]
     Active Substance: DUPILUMAB
     Dosage: UNK
     Dates: start: 202207

REACTIONS (4)
  - Herpes ophthalmic [Unknown]
  - Blindness [Unknown]
  - Ulcer [Unknown]
  - Keratitis [Unknown]
